FAERS Safety Report 5897517-X (Version None)
Quarter: 2008Q3

REPORT INFORMATION
  Report Type: 
  Country: None (occurrence: None)
  Receive Date: 20080916
  Receipt Date: 20070817
  Transmission Date: 20090109
  Serious: Yes (Hospitalization)
  Sender: FDA-Public Use
  Company Number: S07-USA-03503-01

PATIENT
  Age: 34 Year
  Sex: Male

DRUGS (1)
  1. CELEXA [Suspect]
     Indication: SOCIAL PHOBIA
     Dosage: ORAL
     Route: 048
     Dates: start: 20040101

REACTIONS (1)
  - SYNCOPE [None]
